FAERS Safety Report 6739879-7 (Version None)
Quarter: 2010Q2

REPORT INFORMATION
  Report Type: 
  Country: None (occurrence: None)
  Receive Date: 20100525
  Receipt Date: 20100512
  Transmission Date: 20101027
  Serious: Yes (Hospitalization, Other)
  Sender: FDA-Public Use
  Company Number: JP-PFIZER INC-2010054590

PATIENT
  Age: 70 Year
  Sex: Male
  Weight: 56.7 kg

DRUGS (8)
  1. SUNITINIB MALATE [Suspect]
     Indication: RENAL CELL CARCINOMA
     Dosage: 25 MG, 1X/DAY
     Route: 048
     Dates: start: 20100323, end: 20100423
  2. PHENYTOIN SODIUM [Suspect]
     Dosage: 100 MG, 2X/DAY
     Route: 048
     Dates: end: 20100406
  3. RINDERON [Concomitant]
     Dosage: 0.5 MG, 1X/DAY
     Route: 048
     Dates: start: 20100324
  4. TAKEPRON [Concomitant]
     Dosage: 15 MG, 1X/DAY
     Route: 048
     Dates: start: 20100324
  5. LASIX [Concomitant]
     Route: 048
     Dates: end: 20100330
  6. OLMESARTAN MEDOXOMIL [Concomitant]
     Route: 048
     Dates: end: 20100330
  7. CLARITH [Concomitant]
     Dosage: UNK
     Route: 048
     Dates: start: 20100407
  8. MUCODYNE [Concomitant]
     Dosage: UNK
     Route: 048
     Dates: start: 20100407

REACTIONS (3)
  - CONVULSION [None]
  - PLATELET COUNT DECREASED [None]
  - WHITE BLOOD CELL COUNT DECREASED [None]
